FAERS Safety Report 4979959-X (Version None)
Quarter: 2006Q2

REPORT INFORMATION
  Report Type: 
  Country: None (occurrence: None)
  Receive Date: 20060421
  Receipt Date: 20051221
  Transmission Date: 20061013
  Serious: Yes (Hospitalization, Disabling)
  Sender: FDA-Public Use
  Company Number: US-MERCK-0512USA03679

PATIENT
  Age: 66 Year
  Sex: Female
  Weight: 74 kg

DRUGS (8)
  1. VIOXX [Suspect]
     Indication: ARTHRITIS
     Route: 048
     Dates: start: 20020101, end: 20040905
  2. VIOXX [Suspect]
     Indication: PAIN
     Route: 048
     Dates: start: 20020101, end: 20040905
  3. ASPIRIN [Concomitant]
     Indication: PAIN
     Route: 065
     Dates: start: 20030101, end: 20040101
  4. TYLENOL (CAPLET) [Concomitant]
     Route: 065
  5. DIOVAN [Concomitant]
     Route: 065
     Dates: start: 20030101, end: 20040101
  6. TENORMIN [Concomitant]
     Indication: HYPERTENSION
     Route: 065
     Dates: start: 20040101
  7. PLAVIX [Concomitant]
     Route: 065
     Dates: start: 20030101
  8. PREMARIN [Concomitant]
     Indication: HORMONE REPLACEMENT THERAPY
     Route: 065
     Dates: start: 20000101, end: 20050101

REACTIONS (14)
  - ANHEDONIA [None]
  - ANXIETY [None]
  - CATARACT [None]
  - CEREBROVASCULAR ACCIDENT [None]
  - DEPRESSION [None]
  - DIABETES MELLITUS [None]
  - GLAUCOMA [None]
  - IRON DEFICIENCY [None]
  - NERVOUS SYSTEM DISORDER [None]
  - NEUROPATHY [None]
  - PAIN [None]
  - RENAL DISORDER [None]
  - SLEEP DISORDER [None]
  - STOMACH DISCOMFORT [None]
